FAERS Safety Report 8309873-3 (Version None)
Quarter: 2012Q2

REPORT INFORMATION
  Report Type: 
  Country: None (occurrence: None)
  Receive Date: 20120425
  Receipt Date: 20120423
  Transmission Date: 20120825
  Serious: Yes (Hospitalization, Other)
  Sender: FDA-Public Use
  Company Number: PHFR2012IE001275

PATIENT
  Sex: Male
  Weight: 107 kg

DRUGS (3)
  1. HYOSCINE HBR HYT [Concomitant]
     Indication: SALIVARY HYPERSECRETION
     Dosage: 900 MG, UNK
     Route: 048
     Dates: start: 20120210, end: 20120301
  2. CLOZARIL [Suspect]
     Indication: SCHIZOPHRENIA
     Dosage: 375 MG, DAILY
     Route: 048
     Dates: start: 20120105
  3. ARIPIPRAZOLE [Concomitant]
     Indication: SCHIZOPHRENIA
     Dosage: 15 MG DAILY
     Dates: start: 20110101

REACTIONS (5)
  - GASTRITIS [None]
  - ABDOMINAL PAIN [None]
  - VOMITING [None]
  - C-REACTIVE PROTEIN INCREASED [None]
  - ABDOMINAL DISCOMFORT [None]
